FAERS Safety Report 7455097-1 (Version None)
Quarter: 2011Q2

REPORT INFORMATION
  Report Type: 
  Country: None (occurrence: None)
  Receive Date: 20110503
  Receipt Date: 20110406
  Transmission Date: 20111010
  Serious: Yes (Life-Threatening, Other)
  Sender: FDA-Public Use
  Company Number: US-BAYER-201017421NA

PATIENT
  Age: 18 Year
  Sex: Female
  Weight: 71.202 kg

DRUGS (2)
  1. YAZ [Suspect]
     Indication: DYSMENORRHOEA
     Route: 048
  2. PREVACID [Concomitant]

REACTIONS (3)
  - ORGAN FAILURE [None]
  - CHOLECYSTITIS [None]
  - GALLBLADDER DISORDER [None]
